FAERS Safety Report 23841294 (Version 1)
Quarter: 2024Q2

REPORT INFORMATION
  Report Type: Spontaneous
  Country: US (occurrence: US)
  Receive Date: 20240510
  Receipt Date: 20240510
  Transmission Date: 20240716
  Serious: No
  Sender: FDA-Public Use
  Company Number: US-ASTELLAS-2024US010400

PATIENT
  Age: 85 Year
  Sex: Female

DRUGS (10)
  1. IZERVAY [Suspect]
     Active Substance: AVACINCAPTAD PEGOL SODIUM
     Indication: Product used for unknown indication
     Dosage: UNK UNK, UNKNOWN FREQ.
     Route: 050
     Dates: start: 20231214
  2. IZERVAY [Suspect]
     Active Substance: AVACINCAPTAD PEGOL SODIUM
     Indication: Product used for unknown indication
     Dosage: UNK UNK, UNKNOWN FREQ.
     Route: 050
     Dates: start: 20231214
  3. IZERVAY [Suspect]
     Active Substance: AVACINCAPTAD PEGOL SODIUM
     Indication: Product used for unknown indication
     Dosage: UNK UNK, UNKNOWN FREQ.
     Route: 050
     Dates: start: 20231214
  4. IZERVAY [Suspect]
     Active Substance: AVACINCAPTAD PEGOL SODIUM
     Indication: Product used for unknown indication
     Dosage: UNK UNK, UNKNOWN FREQ.
     Route: 050
     Dates: start: 20231214
  5. IZERVAY [Suspect]
     Active Substance: AVACINCAPTAD PEGOL SODIUM
     Indication: Product used for unknown indication
     Dosage: UNK UNK, UNKNOWN FREQ.
     Route: 050
     Dates: start: 20231214
  6. IZERVAY [Suspect]
     Active Substance: AVACINCAPTAD PEGOL SODIUM
     Dosage: UNK UNK, UNKNOWN FREQ. (UNKNOWN EYE)
     Route: 050
     Dates: start: 20240201
  7. IZERVAY [Suspect]
     Active Substance: AVACINCAPTAD PEGOL SODIUM
     Dosage: UNK UNK, UNKNOWN FREQ. (UNKNOWN EYE)
     Route: 050
     Dates: start: 20240201
  8. IZERVAY [Suspect]
     Active Substance: AVACINCAPTAD PEGOL SODIUM
     Dosage: UNK UNK, UNKNOWN FREQ. (UNKNOWN EYE)
     Route: 050
     Dates: start: 20240201
  9. IZERVAY [Suspect]
     Active Substance: AVACINCAPTAD PEGOL SODIUM
     Dosage: UNK UNK, UNKNOWN FREQ. (UNKNOWN EYE)
     Route: 050
     Dates: start: 20240201
  10. IZERVAY [Suspect]
     Active Substance: AVACINCAPTAD PEGOL SODIUM
     Dosage: UNK UNK, UNKNOWN FREQ. (UNKNOWN EYE)
     Route: 050
     Dates: start: 20240201

REACTIONS (2)
  - Anterior chamber cell [Unknown]
  - Vitreal cells [Unknown]

NARRATIVE: CASE EVENT DATE: 20240202
